FAERS Safety Report 6908404-X (Version None)
Quarter: 2010Q3

REPORT INFORMATION
  Report Type: 
  Country: None (occurrence: None)
  Receive Date: 20100805
  Receipt Date: 20100728
  Transmission Date: 20110219
  Serious: Yes (Other)
  Sender: FDA-Public Use
  Company Number: US-BAYER-201018513BCC

PATIENT
  Age: 24 Year
  Sex: Female

DRUGS (1)
  1. MIDOL [Suspect]
     Indication: PAIN
     Route: 048
     Dates: start: 20100727

REACTIONS (6)
  - DEHYDRATION [None]
  - DELIRIUM [None]
  - DIZZINESS [None]
  - HEAT RASH [None]
  - HEAT STROKE [None]
  - VOMITING [None]
